FAERS Safety Report 11051808 (Version 1)
Quarter: 2015Q2

REPORT INFORMATION
  Report Type: Spontaneous
  Country: US (occurrence: US)
  Receive Date: 20150421
  Receipt Date: 20150421
  Transmission Date: 20150821
  Serious: No
  Sender: FDA-Public Use
  Company Number: US-B.I. PHARMACEUTICALS,INC./RIDGEFIELD-2015-BI-19041BP

PATIENT
  Age: 83 Year
  Sex: Female

DRUGS (3)
  1. SPIRIVA [Suspect]
     Active Substance: TIOTROPIUM BROMIDE MONOHYDRATE
     Indication: ASTHMA
     Dosage: 18 MCG
     Route: 055
     Dates: start: 201503
  2. SPIRIVA [Suspect]
     Active Substance: TIOTROPIUM BROMIDE MONOHYDRATE
     Dosage: 18 MCG
     Route: 048
     Dates: start: 20150408, end: 20150408
  3. SYBIMCORT [Concomitant]
     Indication: ASTHMA
     Dosage: 4 ANZ
     Route: 055

REACTIONS (5)
  - Incorrect route of drug administration [Recovered/Resolved]
  - Vomiting [Recovered/Resolved]
  - Throat irritation [Not Recovered/Not Resolved]
  - Foreign body [Recovered/Resolved]
  - Off label use [Not Recovered/Not Resolved]

NARRATIVE: CASE EVENT DATE: 201503
